FAERS Safety Report 24951263 (Version 2)
Quarter: 2025Q3

REPORT INFORMATION
  Report Type: Spontaneous
  Country: US (occurrence: US)
  Receive Date: 20250210
  Receipt Date: 20250810
  Transmission Date: 20251021
  Serious: No
  Sender: ALEXION PHARMACEUTICALS
  Company Number: US-AstraZeneca-CH-00802737A

PATIENT
  Age: 48 Year

DRUGS (4)
  1. IMFINZI [Suspect]
     Active Substance: DURVALUMAB
     Route: 065
  2. FALBIKITUG [Suspect]
     Active Substance: FALBIKITUG
     Route: 065
  3. ABRAXANE [Suspect]
     Active Substance: PACLITAXEL
     Route: 065
  4. GEMCITABINE [Suspect]
     Active Substance: GEMCITABINE
     Route: 065

REACTIONS (8)
  - Clinical trial participant [Unknown]
  - Duodenal stenosis [Unknown]
  - Hepaticojejunostomy [Unknown]
  - Duodenal operation [Unknown]
  - Duodenal operation [Unknown]
  - Gene mutation identification test [Unknown]
  - Anticachectic therapy [Unknown]
  - Angiopathy [Unknown]

NARRATIVE: CASE EVENT DATE: 20230601
